FAERS Safety Report 25397025 (Version 1)
Quarter: 2025Q2

REPORT INFORMATION
  Report Type: Spontaneous
  Country: US (occurrence: None)
  Receive Date: 20250603
  Receipt Date: 20250603
  Transmission Date: 20250717
  Serious: Yes (Hospitalization)
  Sender: FDA-CTU
  Company Number: None

PATIENT
  Age: 66 Year
  Sex: Female

DRUGS (1)
  1. METHADONE HYDROCHLORIDE [Suspect]
     Active Substance: METHADONE HYDROCHLORIDE
     Indication: Pain
     Dosage: FREQUENCY : 3 TIMES A DAY;?
     Route: 048

REACTIONS (6)
  - Dizziness [None]
  - Sedation [None]
  - Vomiting [None]
  - Dysstasia [None]
  - Pneumonia aspiration [None]
  - Accidental overdose [None]

NARRATIVE: CASE EVENT DATE: 20250424
